FAERS Safety Report 7791891-5 (Version None)
Quarter: 2011Q4

REPORT INFORMATION
  Report Type: 
  Country: None (occurrence: None)
  Receive Date: 20111003
  Receipt Date: 20110929
  Transmission Date: 20120403
  Serious: Yes (Other)
  Sender: FDA-Public Use
  Company Number: US-PFIZER INC-2011232946

PATIENT
  Sex: Female
  Weight: 52 kg

DRUGS (4)
  1. CHANTIX [Suspect]
     Indication: SMOKING CESSATION THERAPY
     Dosage: 0.5 MG, 1X/DAY
     Route: 048
     Dates: start: 20110910, end: 20110901
  2. CHANTIX [Suspect]
     Dosage: 0.5 MG, 2X/DAY
     Route: 048
     Dates: start: 20110901, end: 20110917
  3. REMERON [Concomitant]
     Indication: SLEEP DISORDER
  4. REMERON [Concomitant]
     Indication: DEPRESSION
     Dosage: UNK

REACTIONS (3)
  - TOBACCO USER [None]
  - HOSTILITY [None]
  - AGITATION [None]
